FAERS Safety Report 7469521-1 (Version None)
Quarter: 2011Q2

REPORT INFORMATION
  Report Type: 
  Country: None (occurrence: None)
  Receive Date: 20110510
  Receipt Date: 20110502
  Transmission Date: 20111010
  Serious: Yes (Hospitalization)
  Sender: FDA-Public Use
  Company Number: FR-SANOFI-AVENTIS-2011SA027572

PATIENT
  Age: 67 Year
  Sex: Female
  Weight: 90 kg

DRUGS (2)
  1. VITAMIN K TAB [Concomitant]
     Route: 048
     Dates: start: 20110326
  2. MULTAQ [Suspect]
     Route: 048
     Dates: start: 20110326, end: 20110328

REACTIONS (2)
  - PARAESTHESIA [None]
  - FEELING ABNORMAL [None]
